FAERS Safety Report 23665255 (Version 1)
Quarter: 2024Q1

REPORT INFORMATION
  Report Type: Spontaneous
  Country: CN (occurrence: None)
  Receive Date: 20240322
  Receipt Date: 20240322
  Transmission Date: 20240410
  Serious: Yes (Hospitalization, Other)
  Sender: FDA-Public Use
  Company Number: 2024A066020

PATIENT
  Age: 21118 Day
  Sex: Male
  Weight: 94 kg

DRUGS (1)
  1. OSIMERTINIB MESYLATE [Suspect]
     Active Substance: OSIMERTINIB MESYLATE
     Indication: Metastases to central nervous system
     Route: 048
     Dates: start: 20231211, end: 20240219

REACTIONS (2)
  - Interstitial lung disease [Recovering/Resolving]
  - Myelopathy [Unknown]

NARRATIVE: CASE EVENT DATE: 20240218
